FAERS Safety Report 7684025-9 (Version None)
Quarter: 2011Q3

REPORT INFORMATION
  Report Type: 
  Country: None (occurrence: None)
  Receive Date: 20110815
  Receipt Date: 20110811
  Transmission Date: 20111222
  Serious: Yes (Hospitalization, Other)
  Sender: FDA-Public Use
  Company Number: CH-PFIZER INC-2011136612

PATIENT
  Age: 81 Year
  Sex: Female

DRUGS (3)
  1. EFFEXOR [Suspect]
     Dosage: 37.5 MG, 1X/DAY
  2. EFFEXOR [Suspect]
     Dosage: 75 MG, 1X/DAY
  3. SERTRALINE HYDROCHLORIDE [Suspect]
     Dosage: UNK

REACTIONS (4)
  - FALL [None]
  - HYPONATRAEMIA [None]
  - DRUG INEFFECTIVE [None]
  - NAUSEA [None]
